FAERS Safety Report 23813188 (Version 1)
Quarter: 2024Q2

REPORT INFORMATION
  Report Type: Spontaneous
  Country: US (occurrence: US)
  Receive Date: 20240503
  Receipt Date: 20240503
  Transmission Date: 20240716
  Serious: Yes (Hospitalization, Other)
  Sender: FDA-Public Use
  Company Number: US-AMNEAL PHARMACEUTICALS-2024-AMRX-00730

PATIENT

DRUGS (6)
  1. VIGABATRIN [Suspect]
     Active Substance: VIGABATRIN
     Indication: Seizure
     Dosage: MIX 1 PACKET IN 10 ML OF WATER AND GIVE/TAKE 5 ML (250 MG) EVERY MORNING AND EVENING FOR 5 DAYS, THE
     Route: 048
     Dates: start: 20240217
  2. VIGABATRIN [Suspect]
     Active Substance: VIGABATRIN
     Indication: Infantile spasms
  3. TOPIRAMATE [Concomitant]
     Active Substance: TOPIRAMATE
     Indication: Product used for unknown indication
     Dosage: 100 MG TABLET
     Route: 065
  4. MOTRIN IB [Concomitant]
     Active Substance: IBUPROFEN
     Indication: Product used for unknown indication
     Dosage: 200 MG TABLET
     Route: 065
  5. D-BIOTIN [Concomitant]
     Indication: Product used for unknown indication
     Dosage: 100 % POWDER
     Route: 065
  6. TYLENOL [Concomitant]
     Active Substance: ACETAMINOPHEN
     Indication: Product used for unknown indication
     Dosage: 325 MG TABLET
     Route: 065

REACTIONS (2)
  - Seizure [Not Recovered/Not Resolved]
  - Product use issue [Unknown]
